FAERS Safety Report 25117135 (Version 1)
Quarter: 2025Q1

REPORT INFORMATION
  Report Type: Spontaneous
  Country: JP (occurrence: JP)
  Receive Date: 20250325
  Receipt Date: 20250325
  Transmission Date: 20250409
  Serious: Yes (Other)
  Sender: GLAXOSMITHKLINE
  Company Number: JP-GSKNCCC-Case-02277178_AE-95593

PATIENT

DRUGS (1)
  1. TRELEGY ELLIPTA [Suspect]
     Active Substance: FLUTICASONE FUROATE\UMECLIDINIUM BROMIDE\VILANTEROL TRIFENATATE
     Dosage: 100 ?G, 1D, ONE INHALATION UPON WAKING

REACTIONS (4)
  - Interstitial lung disease [Unknown]
  - Dyspnoea [Unknown]
  - Sputum retention [Unknown]
  - Therapeutic product effect incomplete [Unknown]
